FAERS Safety Report 7322971-6 (Version None)
Quarter: 2011Q1

REPORT INFORMATION
  Report Type: 
  Country: None (occurrence: None)
  Receive Date: 20110301
  Receipt Date: 20110218
  Transmission Date: 20110831
  Serious: Yes (Hospitalization)
  Sender: FDA-Public Use
  Company Number: PHHY2010US81884

PATIENT
  Sex: Female
  Weight: 54.422 kg

DRUGS (12)
  1. RECLAST [Suspect]
     Indication: OSTEOPOROSIS
     Dosage: 5MG, YEARLY
     Dates: start: 20101108
  2. TRAZODONE HCL [Concomitant]
     Dosage: 75 MG, QHS
  3. LOTEMAX [Concomitant]
     Indication: DRY EYE
  4. FOLIC ACID [Concomitant]
  5. PROTONIX [Concomitant]
     Dosage: 40 MG, QD
  6. FLUTICASONE [Concomitant]
  7. LORTAB [Concomitant]
     Dosage: 1 DF, TID
  8. ASA [Concomitant]
     Dosage: 81 MG, QD
  9. RANITIDINE [Concomitant]
     Dosage: 150 MG, BID
  10. LEXAPRO [Concomitant]
     Dosage: 20 MG, QD
  11. LISINOPRIL [Concomitant]
     Dosage: UNK
  12. ZANAFLEX [Concomitant]
     Dosage: 4 MG, TID
     Route: 048

REACTIONS (9)
  - FALL [None]
  - VISION BLURRED [None]
  - NAUSEA [None]
  - VOMITING [None]
  - CONVULSION [None]
  - DIPLOPIA [None]
  - CHILLS [None]
  - HEAD INJURY [None]
  - HYPOAESTHESIA [None]
